FAERS Safety Report 9686816 (Version 1)
Quarter: 2013Q4

REPORT INFORMATION
  Report Type: Spontaneous
  Country: US (occurrence: US)
  Receive Date: 20131113
  Receipt Date: 20131113
  Transmission Date: 20140711
  Serious: No
  Sender: FDA-Public Use
  Company Number: US-009507513-1311USA004438

PATIENT
  Sex: Male

DRUGS (1)
  1. NUVARING [Suspect]

REACTIONS (1)
  - Urinary tract infection [Unknown]
